FAERS Safety Report 8384727-5 (Version None)
Quarter: 2012Q2

REPORT INFORMATION
  Report Type: 
  Country: None (occurrence: None)
  Receive Date: 20120524
  Receipt Date: 20120522
  Transmission Date: 20120825
  Serious: Yes (Other)
  Sender: FDA-Public Use
  Company Number: US-PFIZER INC-2012113068

PATIENT

DRUGS (1)
  1. GEODON [Suspect]
     Dosage: UNK
     Dates: start: 20090106

REACTIONS (2)
  - VISUAL IMPAIRMENT [None]
  - CARDIAC DISORDER [None]
